FAERS Safety Report 13144312 (Version 1)
Quarter: 2017Q1

REPORT INFORMATION
  Report Type: Spontaneous
  Country: US (occurrence: US)
  Receive Date: 20170124
  Receipt Date: 20170124
  Transmission Date: 20170428
  Serious: Yes (Other)
  Sender: FDA-Public Use
  Company Number: US-DRREDDYS-USA/USA/16/0085854

PATIENT
  Sex: Female

DRUGS (1)
  1. ZENATANE [Suspect]
     Active Substance: ISOTRETINOIN
     Indication: PRODUCT USED FOR UNKNOWN INDICATION
     Route: 048
     Dates: start: 20160823, end: 20161130

REACTIONS (5)
  - Ovarian cyst [Unknown]
  - Ovarian cyst ruptured [Unknown]
  - Aspartate aminotransferase increased [Recovering/Resolving]
  - Blood triglycerides increased [Recovering/Resolving]
  - Alanine aminotransferase increased [Recovering/Resolving]
